FAERS Safety Report 19002030 (Version 1)
Quarter: 2021Q1

REPORT INFORMATION
  Report Type: Spontaneous
  Country: US (occurrence: US)
  Receive Date: 20210312
  Receipt Date: 20210312
  Transmission Date: 20210420
  Serious: Yes (Death)
  Sender: FDA-Public Use
  Company Number: US-PROCTER_AND_GAMBLE-PH21000421

PATIENT

DRUGS (1)
  1. DIPHENHYDRAMINE HCL [Suspect]
     Active Substance: DIPHENHYDRAMINE HYDROCHLORIDE
     Dosage: 950 MILLIGRAM
     Route: 048

REACTIONS (4)
  - Agitation [Fatal]
  - Tachycardia [Fatal]
  - Cardiac arrest [Fatal]
  - Overdose [Fatal]
